FAERS Safety Report 21468666 (Version 1)
Quarter: 2022Q4

REPORT INFORMATION
  Report Type: Report from Study
  Country: US (occurrence: US)
  Receive Date: 20221018
  Receipt Date: 20221018
  Transmission Date: 20230113
  Serious: Yes (Other)
  Sender: FDA-Public Use
  Company Number: US-ABBVIE-22K-163-4494393-00

PATIENT
  Age: 41 Year
  Sex: Male
  Weight: 104.32 kg

DRUGS (4)
  1. HUMIRA [Suspect]
     Active Substance: ADALIMUMAB
     Indication: Psoriasis
     Route: 058
     Dates: start: 2021, end: 202206
  2. HUMIRA [Suspect]
     Active Substance: ADALIMUMAB
     Dosage: MISSED DOSE - UNKNOWN IF RESTARTED
     Route: 058
  3. PFIZER-BIONTECH COVID-19 VACCINE [Concomitant]
     Active Substance: TOZINAMERAN
     Indication: COVID-19 immunisation
     Dosage: PFIZER 1ST VACCINE: FL3209
     Route: 030
     Dates: start: 20220104, end: 20220210
  4. PFIZER-BIONTECH COVID-19 VACCINE [Concomitant]
     Active Substance: TOZINAMERAN
     Indication: COVID-19 immunisation
     Dosage: 2ND DOSE, FJ5682
     Route: 030
     Dates: start: 2022, end: 2022

REACTIONS (4)
  - Rotator cuff syndrome [Recovering/Resolving]
  - Psoriasis [Unknown]
  - Muscle rupture [Recovering/Resolving]
  - Skin disorder [Not Recovered/Not Resolved]

NARRATIVE: CASE EVENT DATE: 20220701
